FAERS Safety Report 26167563 (Version 1)
Quarter: 2025Q4

REPORT INFORMATION
  Report Type: Report from Study
  Country: ZA (occurrence: ZA)
  Receive Date: 20251217
  Receipt Date: 20251217
  Transmission Date: 20260117
  Serious: Yes (Other)
  Sender: ROCHE
  Company Number: ZA-ROCHE-10000081841

PATIENT
  Sex: Female

DRUGS (4)
  1. VABYSMO [Suspect]
     Active Substance: FARICIMAB-SVOA
     Indication: Macular degeneration
     Dates: start: 20240621
  2. AVASTIN [Concomitant]
     Active Substance: BEVACIZUMAB
  3. EYLEA [Concomitant]
     Active Substance: AFLIBERCEPT
  4. LUCENTIS [Concomitant]
     Active Substance: RANIBIZUMAB

REACTIONS (3)
  - Off label use [Unknown]
  - Visual impairment [Unknown]
  - Retinal thickening [Unknown]
